FAERS Safety Report 21937888 (Version 2)
Quarter: 2023Q2

REPORT INFORMATION
  Report Type: Report from Study
  Country: ES (occurrence: None)
  Receive Date: 20230201
  Receipt Date: 20230602
  Transmission Date: 20230722
  Serious: Yes (Hospitalization)
  Sender: FDA-Public Use
  Company Number: ES-ROCHE-2941568

PATIENT
  Age: 77 Year
  Sex: Male
  Weight: 68.7 kg

DRUGS (10)
  1. ATEZOLIZUMAB [Suspect]
     Active Substance: ATEZOLIZUMAB
     Indication: Transitional cell carcinoma metastatic
     Dosage: CYCLE D1
     Route: 065
     Dates: start: 20210802
  2. ATEZOLIZUMAB [Suspect]
     Active Substance: ATEZOLIZUMAB
     Route: 065
     Dates: start: 20210928
  3. ATEZOLIZUMAB [Suspect]
     Active Substance: ATEZOLIZUMAB
     Dosage: C8D1
     Route: 065
     Dates: start: 20220214
  4. ATEZOLIZUMAB [Suspect]
     Active Substance: ATEZOLIZUMAB
     Dosage: C5D1
     Route: 065
     Dates: start: 20211214
  5. CISPLATIN [Suspect]
     Active Substance: CISPLATIN
     Indication: Transitional cell carcinoma metastatic
     Dosage: CISPLATIN 70 MG/M2 BY IV ON SPLIT-DOSE SCHEDULE OF 35 MG/M2 ON DAY 1 (D1) AND 35 MG/M2 ON DAY 8 (D8)
     Route: 065
     Dates: start: 20210802
  6. CISPLATIN [Suspect]
     Active Substance: CISPLATIN
     Route: 065
     Dates: start: 20211005
  7. CISPLATIN [Suspect]
     Active Substance: CISPLATIN
     Dosage: CYCLE 5D8
     Route: 065
     Dates: start: 20211221
  8. GEMCITABINE [Suspect]
     Active Substance: GEMCITABINE
     Indication: Transitional cell carcinoma metastatic
     Dosage: ON D1 AND 1000 MG/M2 IV ON D8 OF EACH 21-DAY CYCLE FOR UP TO 6 CYCLES. 5D8
     Route: 065
     Dates: start: 20210802
  9. GEMCITABINE [Suspect]
     Active Substance: GEMCITABINE
     Route: 065
     Dates: start: 20211005
  10. GEMCITABINE [Suspect]
     Active Substance: GEMCITABINE
     Dosage: C5D8
     Route: 065
     Dates: start: 20211221

REACTIONS (3)
  - Pyelonephritis acute [Recovered/Resolved]
  - Haematuria [Recovered/Resolved]
  - Haematuria [Recovered/Resolved]

NARRATIVE: CASE EVENT DATE: 20211016
